FAERS Safety Report 7870650-9 (Version None)
Quarter: 2011Q4

REPORT INFORMATION
  Report Type: 
  Country: None (occurrence: None)
  Receive Date: 20111029
  Receipt Date: 20110218
  Transmission Date: 20120403
  Serious: Yes (Hospitalization)
  Sender: FDA-Public Use
  Company Number: US-AMGEN-USASP2011009644

PATIENT
  Sex: Female
  Weight: 60.771 kg

DRUGS (22)
  1. SOMA [Concomitant]
     Dosage: 250 MG, UNK
  2. PRAVASTATIN [Concomitant]
     Dosage: 10 MG, UNK
  3. IMITREX [Concomitant]
     Dosage: 5 MG, UNK
  4. ASPIRIN [Concomitant]
     Dosage: 81 MG, UNK
  5. VITAMIN D [Concomitant]
     Dosage: 400 IU, UNK
  6. VICODIN [Concomitant]
  7. PRILOSEC [Concomitant]
     Dosage: 10 MG, UNK
  8. FLAXSEED OIL [Concomitant]
     Dosage: 1000 MG, UNK
  9. LIDODERM [Concomitant]
     Dosage: 5 UNK, UNK
  10. ENBREL [Suspect]
     Indication: PRODUCT USED FOR UNKNOWN INDICATION
     Dosage: 50 MG, QWK
  11. CELEBREX [Concomitant]
     Dosage: 200 MG, UNK
  12. METHOTREXATE [Concomitant]
     Dosage: 2.5 MG, UNK
  13. PREDNISONE [Concomitant]
     Dosage: 5 MG, UNK
  14. FLEXALL [Concomitant]
     Dosage: 7 UNK, UNK
  15. LYRICA [Concomitant]
     Dosage: 75 MG, UNK
  16. VITAMIN E                          /00110501/ [Concomitant]
     Dosage: 400 IU, UNK
  17. MULTIVITAMIN                       /00097801/ [Concomitant]
  18. FLECTOR                            /00372302/ [Concomitant]
     Dosage: 1.3 UNK, UNK
  19. FORTEO [Concomitant]
  20. VOLTAREN EMULGEL                   /00372301/ [Concomitant]
     Dosage: 1 %, UNK
  21. FISH OIL [Concomitant]
  22. TIZANIDINE HCL [Concomitant]
     Dosage: 4 MG, UNK

REACTIONS (3)
  - CELLULITIS [None]
  - STAPHYLOCOCCAL INFECTION [None]
  - PYREXIA [None]
